FAERS Safety Report 9873566 (Version 1)
Quarter: 2014Q1

REPORT INFORMATION
  Report Type: Spontaneous
  Country: US (occurrence: US)
  Receive Date: 20140206
  Receipt Date: 20140206
  Transmission Date: 20141002
  Serious: No
  Sender: FDA-Public Use
  Company Number: US-ACORDA-ACO_34784_2013

PATIENT
  Age: 55 Year
  Sex: Male
  Weight: 79.37 kg

DRUGS (5)
  1. AMPYRA [Suspect]
     Indication: PRODUCT USED FOR UNKNOWN INDICATION
     Dosage: UNK UNK, BID
  2. COPAXONE [Suspect]
     Indication: MULTIPLE SCLEROSIS
  3. ALL OTHER NON-THERAPEUTIC PRODUCTS [Concomitant]
     Indication: BLOOD PRESSURE
     Dosage: UNK
  4. GABAPENTIN [Concomitant]
     Indication: PAIN
  5. ALL OTHER NON-THERAPEUTIC PRODUCTS [Concomitant]
     Indication: PRODUCT USED FOR UNKNOWN INDICATION
     Dosage: UNK

REACTIONS (1)
  - Visual acuity reduced [Unknown]
